FAERS Safety Report 5589979-2 (Version None)
Quarter: 2008Q1

REPORT INFORMATION
  Report Type: 
  Country: None (occurrence: None)
  Receive Date: 20080114
  Receipt Date: 20080103
  Transmission Date: 20080703
  Serious: Yes (Other)
  Sender: FDA-Public Use
  Company Number: NL-ROCHE-539390

PATIENT
  Age: 25 Year
  Sex: Female
  Weight: 62 kg

DRUGS (1)
  1. ROACCUTANE [Suspect]
     Indication: ACNE
     Dosage: DOSAGE: 3X DAILY
     Route: 048
     Dates: start: 20020101, end: 20070101

REACTIONS (3)
  - CONSTIPATION [None]
  - DEPRESSION [None]
  - HIRSUTISM [None]
